FAERS Safety Report 4383300-3 (Version None)
Quarter: 2004Q2

REPORT INFORMATION
  Report Type: 
  Country: None (occurrence: None)
  Receive Date: 20040618
  Receipt Date: 20040528
  Transmission Date: 20050107
  Serious: Yes (Hospitalization, Other)
  Sender: FDA-Public Use
  Company Number: USA040568787

PATIENT
  Age: 84 Year
  Sex: Female
  Weight: 101 kg

DRUGS (2)
  1. HUMALOG-HUMULIN INSULIN (RDNA): 25% LISPRO, 75% NPL (LI [Suspect]
     Dosage: 45 U DAY
     Dates: start: 20020101
  2. OXYGEN [Concomitant]

REACTIONS (4)
  - BLOOD GLUCOSE INCREASED [None]
  - CARDIAC FAILURE [None]
  - LOSS OF CONSCIOUSNESS [None]
  - PHARMACEUTICAL PRODUCT COMPLAINT [None]
